FAERS Safety Report 5964888-5 (Version None)
Quarter: 2008Q4

REPORT INFORMATION
  Report Type: 
  Country: None (occurrence: None)
  Receive Date: 20081121
  Receipt Date: 20081105
  Transmission Date: 20090506
  Serious: Yes (Hospitalization)
  Sender: FDA-Public Use
  Company Number: 8039257

PATIENT
  Sex: Female

DRUGS (2)
  1. CIMZIA [Suspect]
  2. COUMADIN [Concomitant]

REACTIONS (5)
  - ANOREXIA [None]
  - NAUSEA [None]
  - RENAL FAILURE [None]
  - VOMITING [None]
  - WEIGHT DECREASED [None]
